FAERS Safety Report 25283697 (Version 1)
Quarter: 2025Q2

REPORT INFORMATION
  Report Type: Spontaneous
  Country: US (occurrence: None)
  Receive Date: 20250508
  Receipt Date: 20250508
  Transmission Date: 20250716
  Serious: Yes (Hospitalization, Other)
  Sender: FDA-CTU
  Company Number: None

PATIENT
  Age: 42 Year
  Sex: Female
  Weight: 86.2 kg

DRUGS (2)
  1. CYANOCOBALAMIN\SEMAGLUTIDE [Suspect]
     Active Substance: CYANOCOBALAMIN\SEMAGLUTIDE
     Indication: Obesity
     Route: 058
     Dates: start: 20240801, end: 20250315
  2. Levonorgestrel 21 mcg/24 hrs Intrauterine [Concomitant]

REACTIONS (7)
  - Neck pain [None]
  - Paraesthesia [None]
  - Paraesthesia [None]
  - Intervertebral discitis [None]
  - Extradural abscess [None]
  - Cellulitis [None]
  - Staphylococcal infection [None]

NARRATIVE: CASE EVENT DATE: 20250423
